FAERS Safety Report 20150425 (Version 36)
Quarter: 2024Q3

REPORT INFORMATION
  Report Type: Spontaneous
  Country: CA (occurrence: CA)
  Receive Date: 20211206
  Receipt Date: 20240920
  Transmission Date: 20241016
  Serious: Yes (Other)
  Sender: CELLTRION
  Company Number: CA-CELLTRION INC.-2021CA016344

PATIENT

DRUGS (35)
  1. INFLECTRA [Suspect]
     Active Substance: INFLIXIMAB-DYYB
     Indication: Crohn^s disease
     Dosage: 5 MG/KG WEEKS 0,2,6 THEN EVERY 8 WEEKS, TREATMENT ON HOLD
     Route: 042
     Dates: start: 20210820
  2. INFLECTRA [Suspect]
     Active Substance: INFLIXIMAB-DYYB
     Dosage: 5 MG/KG WEEKS 0,2,6 THEN EVERY 8 WEEKS
     Route: 042
     Dates: start: 20210903
  3. INFLECTRA [Suspect]
     Active Substance: INFLIXIMAB-DYYB
     Dosage: 5 MG/KG WEEKS 0,2,6 THEN EVERY 8 WEEKS
     Route: 042
     Dates: start: 20210929
  4. INFLECTRA [Suspect]
     Active Substance: INFLIXIMAB-DYYB
     Dosage: 5 MG/KG WEEKS 0,2,6 THEN EVERY 8 WEEKS
     Route: 042
     Dates: start: 20211125
  5. INFLECTRA [Suspect]
     Active Substance: INFLIXIMAB-DYYB
     Dosage: 5 MG/KG WEEKS 0,2,6 THEN EVERY 8 WEEKS
     Route: 042
     Dates: start: 20220119, end: 20220119
  6. INFLECTRA [Suspect]
     Active Substance: INFLIXIMAB-DYYB
     Dosage: 5 MG/KG, RE-INDUCTION ON WEEKS 0,2,6, THEN Q8WEEKS
     Route: 042
     Dates: start: 20220927
  7. INFLECTRA [Suspect]
     Active Substance: INFLIXIMAB-DYYB
     Dosage: 5 MG/KG, RE-INDUCTION ON WEEKS 0,2,6, THEN Q8WEEKS
     Route: 042
     Dates: start: 20221014
  8. INFLECTRA [Suspect]
     Active Substance: INFLIXIMAB-DYYB
     Dosage: 5 MG/KG, RE-INDUCTION ON WEEKS 0,2,6, THEN Q8WEEKS
     Route: 042
     Dates: start: 20221111
  9. INFLECTRA [Suspect]
     Active Substance: INFLIXIMAB-DYYB
     Dosage: 10 MG/KG, EVERY 4 WEEKS
     Route: 042
     Dates: start: 20221223
  10. INFLECTRA [Suspect]
     Active Substance: INFLIXIMAB-DYYB
     Dosage: 10 MG/KG, EVERY 4 WEEKS
     Route: 042
     Dates: start: 20230120
  11. INFLECTRA [Suspect]
     Active Substance: INFLIXIMAB-DYYB
     Dosage: 600 MG (10MG/KG), EVERY 4WEEKS
     Route: 042
     Dates: start: 20230217
  12. INFLECTRA [Suspect]
     Active Substance: INFLIXIMAB-DYYB
     Dosage: 580 MG, (10MG/KG) EVERY 4 WEEKS
     Route: 042
     Dates: start: 20230317
  13. INFLECTRA [Suspect]
     Active Substance: INFLIXIMAB-DYYB
     Dosage: 620 MG (10MG/KG) 8 WEEKS (EVERY 4 WEEKS)
     Route: 042
     Dates: start: 20230515
  14. INFLECTRA [Suspect]
     Active Substance: INFLIXIMAB-DYYB
     Dosage: 640 MG, (10MG/KG) EVERY 4 WEEKS
     Route: 042
     Dates: start: 20230613
  15. INFLECTRA [Suspect]
     Active Substance: INFLIXIMAB-DYYB
     Dosage: 640 MG, (10MG/KG) EVERY 4 WEEKS
     Route: 042
     Dates: start: 20230613
  16. INFLECTRA [Suspect]
     Active Substance: INFLIXIMAB-DYYB
     Dosage: 610 MG, EVERY 4 WEEKS
     Route: 042
     Dates: start: 20230711, end: 20230711
  17. INFLECTRA [Suspect]
     Active Substance: INFLIXIMAB-DYYB
     Dosage: 600 MG, EVERY 4 WEEKS
     Route: 042
     Dates: start: 20230808
  18. INFLECTRA [Suspect]
     Active Substance: INFLIXIMAB-DYYB
     Dosage: 640 MG AFTER 4 WEEKS
     Route: 042
     Dates: start: 20230906
  19. INFLECTRA [Suspect]
     Active Substance: INFLIXIMAB-DYYB
     Dosage: 640 MG AFTER 4 WEEKS
     Route: 042
     Dates: start: 20231005
  20. INFLECTRA [Suspect]
     Active Substance: INFLIXIMAB-DYYB
     Dosage: 10 MG/KG EVERY 4 WEEKS
     Route: 042
     Dates: start: 20231031
  21. INFLECTRA [Suspect]
     Active Substance: INFLIXIMAB-DYYB
     Dosage: 650 MG, (10 MG/KG) EVERY 4 WEEKS
     Route: 042
     Dates: start: 20231205
  22. INFLECTRA [Suspect]
     Active Substance: INFLIXIMAB-DYYB
     Dosage: 640 MG (10 MG/KG), 4 WEEKS AND 6 DAYS, PRESCRIBED EVERY 4 WEEK
     Route: 042
     Dates: start: 20240108
  23. INFLECTRA [Suspect]
     Active Substance: INFLIXIMAB-DYYB
     Dosage: 670 MG (10 MG/KG), AFTER 4 WEEKS AND 4 DAYS, (PRESCRIBED EVERY 4 WEEKS)
     Route: 042
     Dates: start: 20240209
  24. INFLECTRA [Suspect]
     Active Substance: INFLIXIMAB-DYYB
     Dosage: 640 MG (10 MG/KG), AFTER 7 WEEKS AND 5 DAYS, (PRESCRIBED EVERY 4 WEEKS)
     Route: 042
     Dates: start: 20240403
  25. INFLECTRA [Suspect]
     Active Substance: INFLIXIMAB-DYYB
     Dosage: 630 MG (10 MG/KG), AFTER 7 WEEKS AND 6 DAYS, (PRESCRIBED EVERY 4 WEEKS)
     Route: 042
     Dates: start: 20240528
  26. INFLECTRA [Suspect]
     Active Substance: INFLIXIMAB-DYYB
     Dosage: 620 MG (10 MG/KG), AFTER 4 WEEKS AND 3 DAYS (PRESCRIBED EVERY 4 WEEKS)
     Route: 042
     Dates: start: 20240628
  27. INFLECTRA [Suspect]
     Active Substance: INFLIXIMAB-DYYB
     Dosage: 660 MG, AFTER 10 WEEKS AND 3 DAYS (PRESCRIBED 10MG/KG, EVERY 4 WEEK)
     Route: 042
     Dates: start: 20240909
  28. AZATHIOPRINE [Concomitant]
     Active Substance: AZATHIOPRINE
     Dosage: 1 DF
  29. CALCIUM [Concomitant]
     Active Substance: CALCIUM
     Dosage: UNK
  30. IMURAN [Concomitant]
     Active Substance: AZATHIOPRINE
     Dosage: 1 DF
  31. PANTOPRAZOLE SODIUM [Concomitant]
     Active Substance: PANTOPRAZOLE SODIUM
     Dosage: 1 DF
  32. PREDNISONE [Concomitant]
     Active Substance: PREDNISONE
     Dosage: 1 DF
  33. VENLAFAXINE HYDROCHLORIDE [Concomitant]
     Active Substance: VENLAFAXINE HYDROCHLORIDE
     Dosage: 37.5 MG (1 DF), DAILY
     Dates: start: 20211110
  34. VENLAFAXINE HYDROCHLORIDE [Concomitant]
     Active Substance: VENLAFAXINE HYDROCHLORIDE
     Dosage: 37.5 MG, DAILY (1 DF)
  35. VENLAFAXINE HYDROCHLORIDE [Concomitant]
     Active Substance: VENLAFAXINE HYDROCHLORIDE
     Dosage: 175 MG, XR
     Route: 048
     Dates: start: 20230501

REACTIONS (17)
  - Uveitis [Recovered/Resolved]
  - Condition aggravated [Not Recovered/Not Resolved]
  - Drug ineffective [Unknown]
  - Flatulence [Not Recovered/Not Resolved]
  - Fistula [Recovered/Resolved]
  - Anal fissure [Not Recovered/Not Resolved]
  - Aphthous ulcer [Recovered/Resolved]
  - Haemorrhoids [Unknown]
  - Constipation [Unknown]
  - Arthralgia [Not Recovered/Not Resolved]
  - Infusion site erythema [Recovered/Resolved]
  - Infusion site pain [Recovered/Resolved]
  - Concussion [Not Recovered/Not Resolved]
  - Off label use [Unknown]
  - Off label use [Unknown]
  - Intentional product use issue [Unknown]
  - Inappropriate schedule of product administration [Unknown]

NARRATIVE: CASE EVENT DATE: 20211125
